FAERS Safety Report 8883858 (Version 1)
Quarter: 2012Q4

REPORT INFORMATION
  Report Type: 
  Country: CN (occurrence: CN)
  Receive Date: 20121102
  Receipt Date: 20121102
  Transmission Date: 20130627
  Serious: Yes (Hospitalization, Other)
  Sender: FDA-Public Use
  Company Number: CN-ELI_LILLY_AND_COMPANY-CN201210007880

PATIENT
  Age: 86 Year
  Sex: Female

DRUGS (1)
  1. FORSTEO [Suspect]
     Indication: OSTEOPOROSIS
     Dosage: 20 ug, qd
     Route: 058
     Dates: start: 20121015

REACTIONS (4)
  - Brain hypoxia [Unknown]
  - Depressed level of consciousness [Unknown]
  - Respiratory tract infection [Unknown]
  - Dyspnoea [Unknown]
